FAERS Safety Report 23818148 (Version 1)
Quarter: 2024Q2

REPORT INFORMATION
  Report Type: Spontaneous
  Country: US (occurrence: US)
  Receive Date: 20240506
  Receipt Date: 20240506
  Transmission Date: 20240716
  Serious: No
  Sender: FDA-Public Use
  Company Number: US-SANOFI-02027430

PATIENT
  Sex: Female

DRUGS (1)
  1. LOVENOX [Suspect]
     Active Substance: ENOXAPARIN SODIUM
     Dosage: UNK
     Dates: start: 2024

REACTIONS (3)
  - Peripheral swelling [Unknown]
  - Fluid retention [Unknown]
  - Weight increased [Unknown]

NARRATIVE: CASE EVENT DATE: 20240101
